FAERS Safety Report 11115286 (Version 1)
Quarter: 2015Q2

REPORT INFORMATION
  Report Type: Spontaneous
  Country: US (occurrence: None)
  Receive Date: 20150513
  Receipt Date: 20150513
  Transmission Date: 20150821
  Serious: Yes (Hospitalization)
  Sender: FDA-Public Use
  Company Number: FK201502188

PATIENT
  Age: 78 Year
  Sex: Female

DRUGS (2)
  1. GEMCITABINE (MANUFACTURER UNKNOWN) (GEMCITABINE) (GEMCITABINE) [Suspect]
     Active Substance: GEMCITABINE HYDROCHLORIDE
     Indication: SARCOMA
  2. DOCETAXEL (MANUFACTURER UNKNOWN) (DOCETAXEL) (DOCETAXEL) [Suspect]
     Active Substance: DOCETAXEL
     Indication: SARCOMA

REACTIONS (7)
  - Retinal detachment [None]
  - Blood creatinine abnormal [None]
  - Pericardial effusion [None]
  - Malignant neoplasm progression [None]
  - Treatment noncompliance [None]
  - Choroidal effusion [None]
  - Sarcoma [None]
